FAERS Safety Report 7174891-8 (Version None)
Quarter: 2010Q4

REPORT INFORMATION
  Report Type: 
  Country: None (occurrence: None)
  Receive Date: 20101219
  Receipt Date: 20101208
  Transmission Date: 20110411
  Serious: Yes (Hospitalization)
  Sender: FDA-Public Use
  Company Number: GB-BRISTOL-MYERS SQUIBB COMPANY-15431935

PATIENT
  Age: 69 Year
  Sex: Female

DRUGS (3)
  1. CARBOPLATIN [Suspect]
     Indication: CHEMOTHERAPY
     Dosage: DOSE REDUCED  AND THEN STOPPED
     Route: 042
     Dates: start: 20100907, end: 20100907
  2. ETOPOSIDE [Suspect]
     Indication: CHEMOTHERAPY
     Dosage: 200MG IV:07-SEP:07SEP10.  400MG ORAL: 08SEP10:10SEP10
     Route: 042
     Dates: start: 20100907, end: 20100907
  3. FRAGMIN [Suspect]
     Indication: LUNG NEOPLASM MALIGNANT
     Dosage: RECENT DOSE PRIOR TO EVENT:21SEP10 INTERRUPTED AND RESTARTED ON 24SEP10
     Dates: start: 20100816

REACTIONS (2)
  - FEBRILE NEUTROPENIA [None]
  - THROMBOCYTOPENIA [None]
